FAERS Safety Report 9807543 (Version 1)
Quarter: 2014Q1

REPORT INFORMATION
  Report Type: Spontaneous
  Country: US (occurrence: US)
  Receive Date: 20140110
  Receipt Date: 20140110
  Transmission Date: 20141002
  Serious: No
  Sender: FDA-Public Use
  Company Number: US-SANOFI-AVENTIS-2013SA009536

PATIENT
  Age: 52 Year
  Sex: Male

DRUGS (9)
  1. PLAVIX [Suspect]
     Dates: start: 200601
  2. PLAVIX [Suspect]
     Dates: start: 200602
  3. ASA [Suspect]
  4. PRILOSEC [Concomitant]
  5. MULTIVITAMINS [Concomitant]
  6. VITAMIN C [Concomitant]
  7. VITAMIN D [Concomitant]
  8. COUMADIN [Concomitant]
  9. TOPROL XL [Concomitant]

REACTIONS (3)
  - Drug dose omission [Unknown]
  - Transient ischaemic attack [Unknown]
  - Haemorrhage [Unknown]
